FAERS Safety Report 19512397 (Version 1)
Quarter: 2021Q3

REPORT INFORMATION
  Report Type: Spontaneous
  Country: IN (occurrence: IN)
  Receive Date: 20210709
  Receipt Date: 20210709
  Transmission Date: 20211014
  Serious: No
  Sender: FDA-Public Use
  Company Number: IN-LUPIN LIMITED-2020-03768

PATIENT
  Sex: Female

DRUGS (1)
  1. EPILIVE FILM C.TABS 250 MG [Suspect]
     Active Substance: LEVETIRACETAM
     Indication: PRODUCT USED FOR UNKNOWN INDICATION
     Dosage: UNK
     Route: 065

REACTIONS (5)
  - Product lot number issue [Unknown]
  - No adverse event [Unknown]
  - Physical product label issue [Unknown]
  - Product expiration date issue [Unknown]
  - Circumstance or information capable of leading to medication error [Unknown]
